FAERS Safety Report 18657121 (Version 7)
Quarter: 2024Q4

REPORT INFORMATION
  Report Type: Spontaneous
  Country: US (occurrence: US)
  Receive Date: 20201224
  Receipt Date: 20241028
  Transmission Date: 20250115
  Serious: No
  Sender: BRISTOL-MYERS SQUIBB COMPANY
  Company Number: US-BRISTOL-MYERS SQUIBB COMPANY-BMS-2020-110673

PATIENT
  Age: 71 Year
  Sex: Female

DRUGS (1)
  1. ORENCIA [Suspect]
     Active Substance: ABATACEPT
     Indication: Rheumatoid arthritis
     Route: 058
     Dates: start: 20200929

REACTIONS (3)
  - Pruritus [Unknown]
  - Abdominal mass [Unknown]
  - Secretion discharge [Unknown]

NARRATIVE: CASE EVENT DATE: 20210305
